FAERS Safety Report 9709134 (Version 2)
Quarter: 2013Q4

REPORT INFORMATION
  Report Type: Report from Study
  Country: US (occurrence: US)
  Receive Date: 20131125
  Receipt Date: 20131127
  Transmission Date: 20140711
  Serious: Yes (Death)
  Sender: FDA-Public Use
  Company Number: US-US-EMD SERONO, INC.-7251945

PATIENT
  Sex: Female
  Weight: 91 kg

DRUGS (1)
  1. REBIF [Suspect]
     Indication: MULTIPLE SCLEROSIS
     Route: 058
     Dates: start: 20060406

REACTIONS (4)
  - Systemic inflammatory response syndrome [Fatal]
  - Decubitus ulcer [Fatal]
  - Deep vein thrombosis [Fatal]
  - Stag horn calculus [Fatal]
